FAERS Safety Report 18277582 (Version 1)
Quarter: 2020Q3

REPORT INFORMATION
  Report Type: Spontaneous
  Country: BR (occurrence: BR)
  Receive Date: 20200917
  Receipt Date: 20200917
  Transmission Date: 20201103
  Serious: Yes (Life-Threatening, Other)
  Sender: FDA-Public Use
  Company Number: BR-TAKEDA-2020TUS039034

PATIENT
  Sex: Male
  Weight: 72 kg

DRUGS (1)
  1. DEXILANT [Suspect]
     Active Substance: DEXLANSOPRAZOLE
     Indication: OESOPHAGITIS
     Dosage: 60 MILLIGRAM, QD
     Route: 065

REACTIONS (5)
  - Arrhythmia [Unknown]
  - Extrasystoles [Unknown]
  - Asthenia [Unknown]
  - Weight decreased [Unknown]
  - Headache [Unknown]
